FAERS Safety Report 5402695-2 (Version None)
Quarter: 2007Q3

REPORT INFORMATION
  Report Type: 
  Country: None (occurrence: None)
  Receive Date: 20070801
  Receipt Date: 20070723
  Transmission Date: 20080115
  Serious: Yes (Hospitalization)
  Sender: FDA-Public Use
  Company Number: B0479159A

PATIENT
  Age: 68 Year
  Sex: Female

DRUGS (1)
  1. AUGMENTIN '125' [Suspect]
     Dosage: 1TAB THREE TIMES PER DAY
     Route: 048
     Dates: start: 20070604, end: 20070611

REACTIONS (8)
  - ABDOMINAL PAIN [None]
  - CHROMATURIA [None]
  - DYSGEUSIA [None]
  - DYSURIA [None]
  - JAUNDICE [None]
  - MALAISE [None]
  - NAUSEA [None]
  - PAINFUL DEFAECATION [None]
